FAERS Safety Report 13277344 (Version 2)
Quarter: 2017Q1

REPORT INFORMATION
  Report Type: Spontaneous
  Country: BR (occurrence: BR)
  Receive Date: 20170228
  Receipt Date: 20170309
  Transmission Date: 20170428
  Serious: Yes (Hospitalization, Other)
  Sender: FDA-Public Use
  Company Number: BR-PFIZER INC-2017078691

PATIENT
  Age: 57 Year
  Sex: Female

DRUGS (16)
  1. ATENSINA [Concomitant]
     Active Substance: CLONIDINE
     Dosage: UNK
     Dates: end: 201610
  2. LIPITOR [Suspect]
     Active Substance: ATORVASTATIN CALCIUM
     Indication: ARTERIAL OCCLUSIVE DISEASE
     Dosage: 10MG 1X/DAY
     Route: 048
     Dates: start: 2004
  3. MONOCORDIL [Concomitant]
     Active Substance: ISOSORBIDE MONONITRATE
     Indication: ANGINA UNSTABLE
     Dosage: UNK
     Dates: start: 2004, end: 20170221
  4. APRESOLINE HYDROCHLORIDE [Concomitant]
     Active Substance: HYDRALAZINE HYDROCHLORIDE
     Dosage: UNK
     Dates: end: 201610
  5. ESOMEPRAZOLE MAGNESIUM. [Concomitant]
     Active Substance: ESOMEPRAZOLE MAGNESIUM
     Indication: ABDOMINAL DISCOMFORT
     Dosage: UNK
  6. AVAMYS [Concomitant]
     Active Substance: FLUTICASONE FUROATE
     Indication: ASTHMA
     Dosage: UNK
     Dates: start: 1997
  7. LIPITOR [Suspect]
     Active Substance: ATORVASTATIN CALCIUM
     Dosage: 40 MG, 1X/DAY
     Dates: start: 2016
  8. FOSTAIR [Concomitant]
     Active Substance: BECLOMETHASONE\FORMOTEROL
     Indication: ASTHMA
     Dosage: UNK
     Dates: start: 1997
  9. LIPITOR [Suspect]
     Active Substance: ATORVASTATIN CALCIUM
     Dosage: 20 MG, 1X/DAY
     Route: 048
     Dates: start: 2008
  10. LIPITOR [Suspect]
     Active Substance: ATORVASTATIN CALCIUM
     Dosage: 80 MG, 1X/DAY
     Dates: start: 2017
  11. MANIVASC [Concomitant]
     Active Substance: MANIDIPINE HYDROCHLORIDE
     Dosage: UNK
     Dates: start: 201610
  12. LIPITOR [Suspect]
     Active Substance: ATORVASTATIN CALCIUM
     Dosage: 10 MG, 1X/DAY
     Route: 048
     Dates: start: 2010
  13. GLIFAGE [Suspect]
     Active Substance: METFORMIN HYDROCHLORIDE
     Dosage: UNK
     Dates: start: 2014, end: 201601
  14. PLAVIX [Concomitant]
     Active Substance: CLOPIDOGREL BISULFATE
     Indication: TACHYCARDIA
     Dosage: UNK
     Dates: start: 2004
  15. VASTAREL [Concomitant]
     Active Substance: TRIMETAZIDINE DIHYDROCHLORIDE
     Indication: ANGINA UNSTABLE
     Dosage: UNK
     Dates: start: 2004
  16. COZAAR [Concomitant]
     Active Substance: LOSARTAN POTASSIUM
     Dosage: UNK
     Dates: start: 2004

REACTIONS (12)
  - Infarction [Recovered/Resolved]
  - Angina unstable [Recovered/Resolved]
  - Renal failure [Recovered/Resolved]
  - Cardiac disorder [Recovered/Resolved]
  - Fatigue [Recovered/Resolved]
  - Drug ineffective [Not Recovered/Not Resolved]
  - Tachycardia [Recovered/Resolved]
  - Depression [Not Recovered/Not Resolved]
  - Syncope [Recovered/Resolved]
  - Hypertension [Not Recovered/Not Resolved]
  - Anaemia [Recovered/Resolved]
  - Feeling abnormal [Recovered/Resolved]

NARRATIVE: CASE EVENT DATE: 2008
